FAERS Safety Report 25335716 (Version 1)
Quarter: 2025Q2

REPORT INFORMATION
  Report Type: Spontaneous
  Country: IN (occurrence: IN)
  Receive Date: 20250520
  Receipt Date: 20250520
  Transmission Date: 20250717
  Serious: Yes (Hospitalization, Other)
  Sender: EPIC PHARM
  Company Number: IN-EPICPHARMA-IN-2025EPCLIT00591

PATIENT
  Age: 43 Year
  Sex: Male

DRUGS (1)
  1. DICLOFENAC SODIUM [Suspect]
     Active Substance: DICLOFENAC SODIUM
     Indication: Pyrexia
     Route: 065

REACTIONS (5)
  - Myocarditis [Recovered/Resolved]
  - Portal hypertensive gastropathy [Recovered/Resolved]
  - Salmonellosis [Recovered/Resolved]
  - Gastroenteritis [Recovered/Resolved]
  - Product use in unapproved indication [Unknown]
